FAERS Safety Report 14782445 (Version 1)
Quarter: 2018Q2

REPORT INFORMATION
  Report Type: Spontaneous
  Country: IT (occurrence: IT)
  Receive Date: 20180420
  Receipt Date: 20180420
  Transmission Date: 20180711
  Serious: Yes (Other)
  Sender: FDA-Public Use
  Company Number: IT-CONCORDIA PHARMACEUTICALS INC.-E2B_00011140

PATIENT
  Age: 92 Year
  Sex: Female

DRUGS (8)
  1. LASIX [Concomitant]
     Active Substance: FUROSEMIDE
  2. LANOXIN [Suspect]
     Active Substance: DIGOXIN
     Indication: CARDIAC FAILURE
     Route: 048
     Dates: start: 20170101, end: 20170901
  3. PANTOPRAZOLE [Concomitant]
     Active Substance: PANTOPRAZOLE
  4. DILATREND [Concomitant]
     Active Substance: CARVEDILOL
  5. NITRO-DUR [Concomitant]
     Active Substance: NITROGLYCERIN
  6. ELIQUIS [Suspect]
     Active Substance: APIXABAN
     Indication: ATRIAL FIBRILLATION
     Route: 048
     Dates: start: 20170101, end: 20170901
  7. CIPROXIN [Concomitant]
     Active Substance: CIPROFLOXACIN
  8. LUVION [Concomitant]

REACTIONS (4)
  - Strangury [Recovering/Resolving]
  - Haematuria [Recovering/Resolving]
  - Cardiac failure [Recovering/Resolving]
  - Cystitis haemorrhagic [Recovering/Resolving]

NARRATIVE: CASE EVENT DATE: 20170826
